FAERS Safety Report 17736658 (Version 3)
Quarter: 2020Q3

REPORT INFORMATION
  Report Type: Spontaneous
  Country: US (occurrence: US)
  Receive Date: 20200501
  Receipt Date: 20200925
  Transmission Date: 20201102
  Serious: Yes (Hospitalization)
  Sender: FDA-Public Use
  Company Number: US-VIFOR (INTERNATIONAL) INC.-VIT-2020-05580

PATIENT
  Age: 64 Year
  Sex: Female

DRUGS (1)
  1. VELTASSA [Suspect]
     Active Substance: PATIROMER
     Indication: HYPERKALAEMIA
     Route: 048
     Dates: start: 20190918

REACTIONS (6)
  - Hospitalisation [Unknown]
  - Umbilical hernia [Unknown]
  - Nausea [Unknown]
  - Off label use [Unknown]
  - Blood potassium increased [Unknown]
  - Vomiting [Unknown]

NARRATIVE: CASE EVENT DATE: 20200911
